FAERS Safety Report 7243595-5 (Version None)
Quarter: 2011Q1

REPORT INFORMATION
  Report Type: 
  Country: None (occurrence: None)
  Receive Date: 20110125
  Receipt Date: 20110114
  Transmission Date: 20110831
  Serious: Yes (Hospitalization, Other)
  Sender: FDA-Public Use
  Company Number: PHHY2010CA44946

PATIENT
  Sex: Female

DRUGS (4)
  1. METFORMIN HCL [Concomitant]
     Indication: TYPE 2 DIABETES MELLITUS
     Dosage: 500 MG, TID
  2. SANDOSTATIN [Suspect]
     Dosage: UNK
     Dates: start: 20100726
  3. SANDOSTATIN [Suspect]
     Indication: PANCREATITIS CHRONIC
     Dosage: THREE TIMES A DAY
     Route: 058
     Dates: start: 20100628
  4. SANDOSTATIN LAR [Suspect]
     Indication: PANCREATITIS CHRONIC
     Dosage: 20 MG, QMO
     Route: 030
     Dates: start: 20100628, end: 20101222

REACTIONS (13)
  - FEELING HOT [None]
  - NAUSEA [None]
  - BODY TEMPERATURE INCREASED [None]
  - HEADACHE [None]
  - READING DISORDER [None]
  - ASTHENIA [None]
  - HOT FLUSH [None]
  - ERYTHEMA [None]
  - ABDOMINAL PAIN UPPER [None]
  - FATIGUE [None]
  - MALAISE [None]
  - ANAEMIA [None]
  - DIZZINESS [None]
